FAERS Safety Report 5499551-0 (Version None)
Quarter: 2007Q4

REPORT INFORMATION
  Report Type: 
  Country: None (occurrence: None)
  Receive Date: 20071026
  Receipt Date: 20071009
  Transmission Date: 20080405
  Serious: Yes (Hospitalization, Other)
  Sender: FDA-Public Use
  Company Number: US-SHR-US-2007-027772

PATIENT
  Age: 45 Year
  Sex: Female
  Weight: 58.957 kg

DRUGS (6)
  1. BETASERON [Suspect]
     Indication: RELAPSING-REMITTING MULTIPLE SCLEROSIS
     Dosage: 8 MIU, EVERY 2D
     Route: 058
     Dates: start: 19940421, end: 20070824
  2. CORTICOSTEROIDS [Concomitant]
     Dates: start: 20070401, end: 20070401
  3. BACLOFEN [Concomitant]
     Dosage: 10 MG, 5X/DAY
  4. PROVIGIL [Concomitant]
     Indication: FATIGUE
     Dosage: 100 MG, 2 IN AM, 1 IN PM
     Dates: start: 20060101
  5. OXYTROL [Concomitant]
     Dates: start: 20070901
  6. ASCORBIC ACID [Concomitant]
     Indication: BLADDER DISORDER
     Dosage: UNK, 3X/DAY
     Dates: start: 20070901

REACTIONS (3)
  - HERPES ZOSTER [None]
  - INJECTION SITE CELLULITIS [None]
  - MULTIPLE SCLEROSIS [None]
